FAERS Safety Report 7429777-8 (Version None)
Quarter: 2011Q2

REPORT INFORMATION
  Report Type: 
  Country: None (occurrence: None)
  Receive Date: 20110421
  Receipt Date: 20110418
  Transmission Date: 20111010
  Serious: Yes (Life-Threatening, Hospitalization)
  Sender: FDA-Public Use
  Company Number: GB-MERCK-1102USA03294

PATIENT
  Age: 76 Year
  Sex: Male

DRUGS (12)
  1. ASPIRIN [Concomitant]
     Route: 065
  2. ISOSORBIDE MONONITRATE [Concomitant]
     Route: 065
  3. DECADRON [Suspect]
     Indication: PROPHYLAXIS OF NAUSEA AND VOMITING
     Route: 048
     Dates: start: 20110111, end: 20110113
  4. ONDANSERTRON HYDROCHLORIDE [Suspect]
     Indication: PROPHYLAXIS OF NAUSEA AND VOMITING
     Route: 042
     Dates: start: 20110111, end: 20110111
  5. PRAVASTATIN SODIUM [Concomitant]
     Route: 065
  6. AMLODIPINE [Concomitant]
     Route: 065
  7. IRON (UNSPECIFIED) [Concomitant]
     Route: 065
  8. IRINOTECAN HCL [Suspect]
     Indication: COLON CANCER STAGE IV
     Route: 042
     Dates: start: 20110111, end: 20110111
  9. BISOPROLOL FUMARATE [Concomitant]
     Route: 065
  10. GLICLAZIDE [Concomitant]
     Route: 065
  11. METFORMIN [Concomitant]
     Route: 065
  12. IRBESARTAN [Concomitant]
     Route: 065

REACTIONS (4)
  - VOMITING [None]
  - DIARRHOEA [None]
  - CHEST DISCOMFORT [None]
  - ACUTE MYOCARDIAL INFARCTION [None]
